FAERS Safety Report 4713075-7 (Version None)
Quarter: 2005Q3

REPORT INFORMATION
  Report Type: 
  Country: None (occurrence: None)
  Receive Date: 20050713
  Receipt Date: 20050405
  Transmission Date: 20060218
  Serious: Yes (Death, Life-Threatening, Hospitalization)
  Sender: FDA-Public Use
  Company Number: PHBS2005VE04817

PATIENT
  Age: 71 Year
  Sex: Male

DRUGS (3)
  1. ZOLADEX [Concomitant]
     Indication: PROSTATE CANCER
     Dosage: 10.8 MG, Q3MO
     Route: 058
     Dates: end: 20041201
  2. ZOLADEX [Concomitant]
     Dosage: 3.6 MG, QMO
     Route: 058
     Dates: start: 20050101
  3. ZOMETA [Suspect]
     Indication: METASTASES TO BONE
     Dosage: 4 MG, QMO
     Route: 042
     Dates: end: 20050222

REACTIONS (8)
  - BONE MARROW TOXICITY [None]
  - HAEMOGLOBIN DECREASED [None]
  - LEUKOPENIA [None]
  - PANCYTOPENIA [None]
  - PLATELET COUNT DECREASED [None]
  - THROMBOCYTOPENIA [None]
  - WHITE BLOOD CELL COUNT DECREASED [None]
  - WHOLE BLOOD TRANSFUSION [None]
